FAERS Safety Report 24378297 (Version 1)
Quarter: 2024Q3

REPORT INFORMATION
  Report Type: Spontaneous
  Country: US (occurrence: None)
  Receive Date: 20240927
  Receipt Date: 20240927
  Transmission Date: 20241017
  Serious: Yes (Other)
  Sender: Public
  Company Number: None

PATIENT
  Age: 76 Year
  Sex: Male
  Weight: 63.9 kg

DRUGS (1)
  1. PRIVIGEN [Suspect]
     Active Substance: HUMAN IMMUNOGLOBULIN G
     Indication: Demyelinating polyneuropathy
     Dosage: OTHER FREQUENCY : ONCE EVERY 2 WEEKS;?
     Route: 041
     Dates: start: 20240725, end: 20240726

REACTIONS (4)
  - Renal disorder [None]
  - Glomerular filtration rate decreased [None]
  - Blood osmolarity increased [None]
  - Infusion related reaction [None]

NARRATIVE: CASE EVENT DATE: 20240725
